FAERS Safety Report 21627407 (Version 2)
Quarter: 2023Q1

REPORT INFORMATION
  Report Type: Spontaneous
  Country: AU (occurrence: None)
  Receive Date: 20221122
  Receipt Date: 20230110
  Transmission Date: 20230418
  Serious: Yes (Other)
  Sender: FDA-Public Use
  Company Number: 2022A381654

PATIENT
  Age: 23003 Day
  Sex: Female

DRUGS (1)
  1. EVUSHELD [Suspect]
     Active Substance: CILGAVIMAB\TIXAGEVIMAB
     Indication: Immunodeficiency
     Dosage: 300.0MG ONCE/SINGLE ADMINISTRATION
     Route: 030
     Dates: start: 20220901, end: 20220901

REACTIONS (8)
  - Swelling [Recovered/Resolved]
  - Pain in extremity [Unknown]
  - Arthralgia [Recovered/Resolved]
  - Joint stiffness [Recovered/Resolved]
  - Back pain [Recovered/Resolved]
  - Joint swelling [Recovered/Resolved]
  - Paraesthesia [Recovered/Resolved]
  - Tenderness [Recovered/Resolved]

NARRATIVE: CASE EVENT DATE: 20220911
